FAERS Safety Report 17455745 (Version 1)
Quarter: 2020Q1

REPORT INFORMATION
  Report Type: Spontaneous
  Country: US (occurrence: US)
  Receive Date: 20200225
  Receipt Date: 20200225
  Transmission Date: 20200409
  Serious: No
  Sender: FDA-Public Use
  Company Number: None

PATIENT

DRUGS (2)
  1. SYNTHROID [Concomitant]
     Active Substance: LEVOTHYROXINE SODIUM
     Dates: start: 20190820
  2. PIQRAY [Suspect]
     Active Substance: ALPELISIB
     Dates: start: 20191127, end: 20191225

REACTIONS (12)
  - Nausea [None]
  - Pruritus [None]
  - Fatigue [None]
  - Vomiting [None]
  - Erythema [None]
  - Flushing [None]
  - Abdominal distension [None]
  - Tremor [None]
  - Pyrexia [None]
  - Asthenia [None]
  - Rash [None]
  - Bacterial infection [None]

NARRATIVE: CASE EVENT DATE: 20191206
